FAERS Safety Report 22163938 (Version 1)
Quarter: 2023Q2

REPORT INFORMATION
  Report Type: Spontaneous
  Country: US (occurrence: US)
  Receive Date: 20230402
  Receipt Date: 20230402
  Transmission Date: 20230721
  Serious: No
  Sender: FDA-Public Use
  Company Number: US-drreddys-SPO/USA/23/0161491

PATIENT
  Age: 25 Year
  Sex: Female

DRUGS (8)
  1. MOXIFLOXACIN [Suspect]
     Active Substance: MOXIFLOXACIN
     Indication: Mycobacterium chelonae infection
     Route: 048
  2. MOXIFLOXACIN [Suspect]
     Active Substance: MOXIFLOXACIN
     Indication: Mycobacterium abscessus infection
  3. AZITHROMYCIN [Concomitant]
     Active Substance: AZITHROMYCIN
     Indication: Mycobacterium abscessus infection
  4. AZITHROMYCIN [Concomitant]
     Active Substance: AZITHROMYCIN
     Indication: Mycobacterium chelonae infection
  5. AMIKACIN [Concomitant]
     Active Substance: AMIKACIN
     Indication: Mycobacterium chelonae infection
     Dosage: ON MONDAY, WEDNESDAY, AND FRIDAY
  6. AMIKACIN [Concomitant]
     Active Substance: AMIKACIN
     Indication: Mycobacterium abscessus infection
  7. TIGECYCLINE [Concomitant]
     Active Substance: TIGECYCLINE
     Indication: Mycobacterium abscessus infection
     Route: 042
  8. TIGECYCLINE [Concomitant]
     Active Substance: TIGECYCLINE
     Indication: Mycobacterium chelonae infection

REACTIONS (2)
  - Gastrointestinal disorder [Unknown]
  - Product use in unapproved indication [Unknown]
